FAERS Safety Report 24173128 (Version 4)
Quarter: 2024Q3

REPORT INFORMATION
  Report Type: Spontaneous
  Country: CO (occurrence: CO)
  Receive Date: 20240805
  Receipt Date: 20240927
  Transmission Date: 20241017
  Serious: No
  Sender: PFIZER
  Company Number: CO-PFIZER INC-202400226585

PATIENT
  Age: 11 Year
  Sex: Male

DRUGS (1)
  1. GENOTROPIN [Suspect]
     Active Substance: SOMATROPIN
     Indication: Short stature
     Dosage: 1.4 MG, DAILY
     Route: 058
     Dates: start: 2022

REACTIONS (4)
  - Expired device used [Unknown]
  - Device leakage [Unknown]
  - Poor quality device used [Unknown]
  - Underweight [Unknown]

NARRATIVE: CASE EVENT DATE: 20240701
